FAERS Safety Report 8947710 (Version 1)
Quarter: 2012Q4

REPORT INFORMATION
  Report Type: Spontaneous
  Country: DK (occurrence: None)
  Receive Date: 20121127
  Receipt Date: 20121127
  Transmission Date: 20130627
  Serious: Yes (Hospitalization)
  Sender: FDA-Public Use
  Company Number: 2012MA013562

PATIENT
  Sex: Female

DRUGS (2)
  1. DIAZEPAM TABLETS USP, 10 MG (PUREPAC) (DIAZEPAM) [Suspect]
     Indication: DRUG USE FOR UNKNOWN INDICATION
  2. ALPRAZOLAM TABLETS USP, 2 MG (PUREPAC) (ALPRAZOLAM) [Suspect]
     Indication: DRUG USE FOR UNKNOWN INDICATION

REACTIONS (2)
  - Toxicity to various agents [None]
  - Sopor [None]
